FAERS Safety Report 9218337 (Version 4)
Quarter: 2013Q3

REPORT INFORMATION
  Report Type: Spontaneous
  Country: US (occurrence: US)
  Receive Date: 20130409
  Receipt Date: 20130801
  Transmission Date: 20140515
  Serious: No
  Sender: FDA-Public Use
  Company Number: US-BIOGENIDEC-2013BI029412

PATIENT
  Age: 48 Year
  Sex: Female

DRUGS (2)
  1. AVONEX [Suspect]
     Indication: MULTIPLE SCLEROSIS
     Route: 030
     Dates: start: 20130101, end: 20130423
  2. AVONEX [Suspect]
     Indication: MULTIPLE SCLEROSIS
     Route: 030

REACTIONS (19)
  - Crying [Not Recovered/Not Resolved]
  - Tremor [Unknown]
  - Blindness [Unknown]
  - Optic neuritis [Unknown]
  - Contusion [Unknown]
  - Apathy [Unknown]
  - Constipation [Recovered/Resolved]
  - Cold sweat [Unknown]
  - Injection site warmth [Not Recovered/Not Resolved]
  - Stress [Recovered/Resolved]
  - Hyperhidrosis [Recovered/Resolved]
  - Nausea [Recovered/Resolved]
  - Headache [Unknown]
  - Asthenia [Not Recovered/Not Resolved]
  - Injection site erythema [Recovered/Resolved]
  - Muscle spasms [Recovered/Resolved]
  - Depression [Recovered/Resolved]
  - Fatigue [Unknown]
  - Emotional disorder [Unknown]
